FAERS Safety Report 6187043-5 (Version None)
Quarter: 2009Q2

REPORT INFORMATION
  Report Type: 
  Country: None (occurrence: None)
  Receive Date: 20090508
  Receipt Date: 20090430
  Transmission Date: 20091009
  Serious: Yes (Hospitalization)
  Sender: FDA-Public Use
  Company Number: 2009-01699

PATIENT
  Age: 65 Year
  Sex: Female
  Weight: 53.5 kg

DRUGS (11)
  1. VELCADE [Suspect]
     Indication: MULTIPLE MYELOMA
     Dosage: 1.3 MG/M2, INTRAVENOUS
     Route: 042
     Dates: start: 20080912, end: 20090420
  2. THALIDOMIDE [Suspect]
     Indication: MULTIPLE MYELOMA
     Dosage: 100 MG, , ORAL
     Route: 048
     Dates: start: 20080912, end: 20090305
  3. DEXAMETHASONE [Suspect]
     Indication: MULTIPLE MYELOMA
     Dosage: 20 MG,  ORAL
     Route: 048
     Dates: start: 20080912, end: 20090217
  4. COUMADIN [Concomitant]
  5. KYTRIL [Concomitant]
  6. LISINOPRIL [Concomitant]
  7. PLETAL [Concomitant]
  8. PLAVIX [Concomitant]
  9. WELCHOL [Concomitant]
  10. ZETIA [Concomitant]
  11. BONIVA [Concomitant]

REACTIONS (8)
  - ABDOMINAL DISTENSION [None]
  - ABDOMINAL PAIN [None]
  - ACTIVATED PARTIAL THROMBOPLASTIN TIME PROLONGED [None]
  - CONSTIPATION [None]
  - INTERNATIONAL NORMALISED RATIO INCREASED [None]
  - PLATELET COUNT DECREASED [None]
  - PROTHROMBIN TIME PROLONGED [None]
  - RECTAL HAEMORRHAGE [None]
